FAERS Safety Report 23527206 (Version 1)
Quarter: 2024Q1

REPORT INFORMATION
  Report Type: Spontaneous
  Country: US (occurrence: US)
  Receive Date: 20240215
  Receipt Date: 20240215
  Transmission Date: 20240410
  Serious: No
  Sender: FDA-Public Use
  Company Number: US-SA-SAC20240208000722

PATIENT
  Age: 34 Year
  Sex: Male

DRUGS (6)
  1. DUPIXENT [Suspect]
     Active Substance: DUPILUMAB
     Indication: Asthma
     Dosage: 200MG; EVERY 14 DAYS
     Route: 058
     Dates: start: 20230728, end: 20240128
  2. OMEPRAZOLE [Concomitant]
     Active Substance: OMEPRAZOLE
  3. TRELEGY ELLIPTA [Concomitant]
     Active Substance: FLUTICASONE FUROATE\UMECLIDINIUM BROMIDE\VILANTEROL TRIFENATATE
  4. MONTELUKAST [Concomitant]
     Active Substance: MONTELUKAST SODIUM
  5. LOSARTAN [Concomitant]
     Active Substance: LOSARTAN
  6. MESALAMINE [Concomitant]
     Active Substance: MESALAMINE

REACTIONS (2)
  - Asthma [Unknown]
  - Product dose omission issue [Unknown]

NARRATIVE: CASE EVENT DATE: 20240101
